FAERS Safety Report 12690460 (Version 2)
Quarter: 2017Q1

REPORT INFORMATION
  Report Type: Report from Study
  Country: US (occurrence: US)
  Receive Date: 20160826
  Receipt Date: 20170307
  Transmission Date: 20170428
  Serious: Yes (Death)
  Sender: FDA-Public Use
  Company Number: US-PFIZER INC-2016400761

PATIENT

DRUGS (7)
  1. VINCRISTINE SULFATE. [Suspect]
     Active Substance: VINCRISTINE SULFATE
     Indication: MEDULLOBLASTOMA
     Dosage: 0.05 MG/KG, CYCLIC (ON DAYS 1,8 AND 15 OF CYCLES 1 TO 3 ONLY)
  2. CARBOPLATIN. [Suspect]
     Active Substance: CARBOPLATIN
     Indication: MEDULLOBLASTOMA
     Dosage: AUC OF 7/DAY X 3 DAYS, CYCLIC
  3. CISPLATIN. [Suspect]
     Active Substance: CISPLATIN
     Indication: MEDULLOBLASTOMA
     Dosage: 3.5 MG/KG, CYCLIC (ON DAY 1 ON INDUCTION PHASE)
  4. ETOPOSIDE. [Suspect]
     Active Substance: ETOPOSIDE
     Dosage: 250 MG/M2/ DAY X3 DAYS, CYCLIC ON MYELOABLATIVE CHEMOTHERAPY
  5. THIOTEPA. [Suspect]
     Active Substance: THIOTEPA
     Indication: MEDULLOBLASTOMA
     Dosage: 300 MG/M2/DAY X 3 DAYS, CYCLIC ON MYELOABLATIVE CHEMOTHERAPY
  6. ETOPOSIDE. [Suspect]
     Active Substance: ETOPOSIDE
     Indication: MEDULLOBLASTOMA
     Dosage: 4 MG/KG, CYCLIC (ON DAYS 2 AND 3 ON INDUCTION PHASE)
  7. CYCLOPHOSPHAMIDE. [Suspect]
     Active Substance: CYCLOPHOSPHAMIDE
     Indication: MEDULLOBLASTOMA
     Dosage: 65 MG/KG, CYCLIC (ON DAYS 2 AND 3)

REACTIONS (1)
  - Pseudomonal sepsis [Fatal]
